FAERS Safety Report 8529509-6 (Version None)
Quarter: 2012Q3

REPORT INFORMATION
  Report Type: 
  Country: None (occurrence: None)
  Receive Date: 20120723
  Receipt Date: 20120713
  Transmission Date: 20120928
  Serious: Yes (Other)
  Sender: FDA-Public Use
  Company Number: BR-JNJFOC-20120707619

PATIENT
  Sex: Female

DRUGS (2)
  1. REMICADE [Suspect]
     Indication: RHEUMATOID ARTHRITIS
     Route: 042
     Dates: start: 20120612
  2. REMICADE [Suspect]
     Route: 042

REACTIONS (3)
  - MEMORY IMPAIRMENT [None]
  - SLUGGISHNESS [None]
  - HEAD DISCOMFORT [None]
